FAERS Safety Report 5050016-X (Version None)
Quarter: 2006Q2

REPORT INFORMATION
  Report Type: 
  Country: None (occurrence: None)
  Receive Date: 20060614
  Receipt Date: 20060418
  Transmission Date: 20061013
  Serious: Yes (Other)
  Sender: FDA-Public Use
  Company Number: 444949

PATIENT
  Sex: Female

DRUGS (6)
  1. BONIVA [Suspect]
     Indication: OSTEOPOROSIS
     Dosage: 150 MG 1 PER MONTH ORAL
     Route: 048
     Dates: start: 20060401, end: 20060401
  2. CALCIUM/MAGNESIUM (CALCIUM/MAGNESIUM) [Concomitant]
  3. PERCOCET (OXYCODONE/PARACETAMOL) [Concomitant]
  4. TRAZODONE HCL [Concomitant]
  5. OXAZEPAM [Concomitant]
  6. AMBIEN [Concomitant]

REACTIONS (4)
  - ARTHRALGIA [None]
  - CHEST PAIN [None]
  - DYSPHAGIA [None]
  - GASTROOESOPHAGEAL REFLUX DISEASE [None]
